FAERS Safety Report 6343035-4 (Version None)
Quarter: 2009Q3

REPORT INFORMATION
  Report Type: 
  Country: None (occurrence: None)
  Receive Date: 20090821
  Receipt Date: 20090605
  Transmission Date: 20100115
  Serious: No
  Sender: FDA-Public Use
  Company Number: 8047577

PATIENT
  Sex: Female
  Weight: 127 kg

DRUGS (29)
  1. CIMZIA [Suspect]
     Indication: CROHN'S DISEASE
     Dosage: 400 MG 1/2W SC
     Route: 058
     Dates: start: 20080901
  2. ASACOL [Concomitant]
  3. LYRICA [Concomitant]
  4. BACLOSEN [Concomitant]
  5. CYMBALTA [Concomitant]
  6. ACID REFLUX [Concomitant]
  7. PRE-HYPERTENSION [Concomitant]
  8. SEASONAL ALLERGIES [Concomitant]
  9. SLEEP APNEA [Concomitant]
  10. CROHN'S DISEASE [Concomitant]
  11. LIPITOR [Concomitant]
  12. ALTACE [Concomitant]
  13. PRILOSEC [Concomitant]
  14. WELCHOL [Concomitant]
  15. LANTUS [Concomitant]
  16. NOVOLOG [Concomitant]
  17. ALLEGRA [Concomitant]
  18. FOLITAB [Concomitant]
  19. TALWIN NX [Concomitant]
  20. TYLENOL W/ CODEINE [Concomitant]
  21. AMBIEN [Concomitant]
  22. FOSAMAX [Concomitant]
  23. MULTI-VITAMIN [Concomitant]
  24. VITAMIN D [Concomitant]
  25. CALCIUM [Concomitant]
  26. VITAMIN E [Concomitant]
  27. ASCORBIC ACID [Concomitant]
  28. LOVAZA [Concomitant]
  29. VITAMIN B COMPLEX CAP [Concomitant]

REACTIONS (3)
  - DEEP VEIN THROMBOSIS [None]
  - INFECTION [None]
  - PAIN IN EXTREMITY [None]
